FAERS Safety Report 10479039 (Version 3)
Quarter: 2014Q4

REPORT INFORMATION
  Report Type: Report from Study
  Country: BR (occurrence: BR)
  Receive Date: 20140926
  Receipt Date: 20141110
  Transmission Date: 20150528
  Serious: Yes (Hospitalization)
  Sender: FDA-Public Use
  Company Number: BR-ELI_LILLY_AND_COMPANY-BR201409004959

PATIENT
  Age: 58 Year
  Sex: Female

DRUGS (10)
  1. HUMULIN N [Suspect]
     Active Substance: INSULIN HUMAN
     Dosage: 5 IU, QD
     Route: 065
  2. LISPRO KWIKPEN / MIRIOPEN DISPOSABLE [Suspect]
     Active Substance: INSULIN LISPRO
     Indication: DIABETES MELLITUS
     Dosage: 4 IU, TID
     Route: 058
     Dates: start: 20140808
  3. HUMULIN N [Suspect]
     Active Substance: INSULIN HUMAN
     Indication: PRODUCT USED FOR UNKNOWN INDICATION
     Dosage: 4 IU, BID
     Route: 065
  4. SLOW K [Concomitant]
     Active Substance: POTASSIUM CHLORIDE
     Indication: BLOOD POTASSIUM
     Dosage: UNK, UNKNOWN
     Route: 065
  5. NOVOLIN N [Suspect]
     Active Substance: INSULIN HUMAN
     Indication: PRODUCT USED FOR UNKNOWN INDICATION
     Dosage: UNK, UNKNOWN
     Route: 065
  6. LANTUS [Concomitant]
     Active Substance: INSULIN GLARGINE
     Indication: DIABETES MELLITUS
     Dosage: UNK, UNKNOWN
     Route: 065
  7. GABAPENTINA [Concomitant]
     Active Substance: GABAPENTIN
     Indication: PAIN
     Dosage: UNK, BID
     Route: 065
  8. NEUTROFER [Concomitant]
     Active Substance: FERROUS BISGLYCINATE
     Indication: ANAEMIA
     Dosage: 150 DF, QD
     Route: 065
  9. LISPRO KWIKPEN / MIRIOPEN DISPOSABLE [Suspect]
     Active Substance: INSULIN LISPRO
     Indication: DIABETES MELLITUS MANAGEMENT
  10. OMEPRAZOL [Concomitant]
     Active Substance: OMEPRAZOLE
     Dosage: 20 MG, QD
     Route: 065

REACTIONS (13)
  - Gastric disorder [Recovered/Resolved]
  - Blood glucose fluctuation [Not Recovered/Not Resolved]
  - Anxiety [Unknown]
  - Injection site bruising [Not Recovered/Not Resolved]
  - Abdominal wall infection [Recovered/Resolved]
  - Gastrointestinal motility disorder [Recovered/Resolved]
  - Blood glucose increased [Unknown]
  - Platelet count decreased [Unknown]
  - Haematoma [Unknown]
  - Fall [Recovered/Resolved]
  - Wrong drug administered [Unknown]
  - Immunodeficiency [Unknown]
  - Localised infection [Recovered/Resolved]

NARRATIVE: CASE EVENT DATE: 201408
